FAERS Safety Report 9860842 (Version 1)
Quarter: 2014Q1

REPORT INFORMATION
  Report Type: Spontaneous
  Country: AU (occurrence: AU)
  Receive Date: 20140202
  Receipt Date: 20140202
  Transmission Date: 20141002
  Serious: No
  Sender: FDA-Public Use
  Company Number: AU-ALLERGAN-1301558US

PATIENT
  Age: 30 Year
  Sex: Female

DRUGS (2)
  1. BOTOX [Suspect]
     Indication: SKIN WRINKLING
     Dosage: 20 UNITS, SINGLE
     Route: 030
     Dates: start: 20130129, end: 20130129
  2. BOTOX [Suspect]
     Dosage: 4 UNITS, SINGLE
     Dates: start: 20130129, end: 20130129

REACTIONS (2)
  - Mass [Recovering/Resolving]
  - Pain in jaw [Recovering/Resolving]
